FAERS Safety Report 8367195-9 (Version None)
Quarter: 2012Q1

REPORT INFORMATION
  Report Type: 
  Country: None (occurrence: None)
  Receive Date: 20120323
  Receipt Date: 20110727
  Transmission Date: 20120608
  Serious: Yes (Hospitalization)
  Sender: FDA-Public Use
  Company Number: 163-21880-11080023

PATIENT
  Age: 51 Year
  Sex: Female

DRUGS (2)
  1. REVLIMID [Suspect]
     Indication: MULTIPLE MYELOMA
     Dosage: 25 MG, DAILY DAYS 1-21, PO; 25 MG, DAILY DAYS 1-21, PO
     Route: 048
     Dates: start: 20110609, end: 20110101
  2. REVLIMID [Suspect]
     Indication: MULTIPLE MYELOMA
     Dosage: 25 MG, DAILY DAYS 1-21, PO; 25 MG, DAILY DAYS 1-21, PO
     Route: 048
     Dates: start: 20110101

REACTIONS (1)
  - RED BLOOD CELL COUNT DECREASED [None]
